FAERS Safety Report 9565427 (Version 2)
Quarter: 2013Q3

REPORT INFORMATION
  Report Type: Spontaneous
  Country: US (occurrence: US)
  Receive Date: 20130930
  Receipt Date: 20130930
  Transmission Date: 20140515
  Serious: Yes (Hospitalization)
  Sender: FDA-Public Use
  Company Number: US-ELI_LILLY_AND_COMPANY-US201304003802

PATIENT
  Sex: Female

DRUGS (2)
  1. HUMALOG 25% LISPRO, 75% NPL [Suspect]
     Indication: DIABETES MELLITUS
     Dosage: 40 U, EACH MORNING
  2. HUMALOG 25% LISPRO, 75% NPL [Suspect]
     Dosage: 22 U, EACH EVENING

REACTIONS (1)
  - Pneumonia [Recovered/Resolved]
